FAERS Safety Report 20218217 (Version 1)
Quarter: 2021Q4

REPORT INFORMATION
  Report Type: Spontaneous
  Country: CN (occurrence: CN)
  Receive Date: 20211222
  Receipt Date: 20211222
  Transmission Date: 20220303
  Serious: Yes (Other)
  Sender: FDA-Public Use
  Company Number: CN-BRACCO-2021CN05446

PATIENT
  Age: 49 Year
  Sex: Female

DRUGS (3)
  1. SULFUR HEXAFLUORIDE [Suspect]
     Active Substance: SULFUR HEXAFLUORIDE
     Indication: Ultrasound breast
     Dosage: 4.8 ML VIA THE ELBOW VEIN, SINGLE
     Route: 042
     Dates: start: 20211215, end: 20211215
  2. SULFUR HEXAFLUORIDE [Suspect]
     Active Substance: SULFUR HEXAFLUORIDE
     Indication: Ultrasound breast
     Dosage: 4.8 ML VIA THE ELBOW VEIN, SINGLE
     Route: 042
     Dates: start: 20211215, end: 20211215
  3. SULFUR HEXAFLUORIDE [Suspect]
     Active Substance: SULFUR HEXAFLUORIDE
     Indication: Ultrasound breast
     Dosage: 4.8 ML VIA THE ELBOW VEIN, SINGLE
     Route: 042
     Dates: start: 20211215, end: 20211215

REACTIONS (5)
  - Blood pressure decreased [Recovered/Resolved]
  - Hyperhidrosis [Recovered/Resolved]
  - Pallor [Recovered/Resolved]
  - Abdominal pain [Recovered/Resolved]
  - Back pain [Recovered/Resolved]

NARRATIVE: CASE EVENT DATE: 20211215
